FAERS Safety Report 8788799 (Version 1)
Quarter: 2012Q4

REPORT INFORMATION
  Report Type: 
  Country: SE (occurrence: SE)
  Receive Date: 20120917
  Receipt Date: 20120917
  Transmission Date: 20130627
  Serious: Yes (Hospitalization)
  Sender: FDA-Public Use
  Company Number: SE-GE HEALTHCARE MEDICAL DIAGNOSTICS-OMPQ-NO-1209S-0932

PATIENT
  Age: 47 Year
  Sex: Female

DRUGS (1)
  1. OMNIPAQUE [Suspect]
     Indication: PRODUCT USED FOR UNKNOWN INDICATION
     Dosage: dose not reported
     Route: 042
     Dates: start: 20120711, end: 20120711

REACTIONS (3)
  - Tongue oedema [Unknown]
  - Dysphagia [Unknown]
  - Hypoaesthesia [Unknown]
